FAERS Safety Report 7929292-9 (Version None)
Quarter: 2011Q4

REPORT INFORMATION
  Report Type: 
  Country: None (occurrence: None)
  Receive Date: 20111121
  Receipt Date: 20111116
  Transmission Date: 20120403
  Serious: No
  Sender: FDA-Public Use
  Company Number: US-BIOGENIDEC-2011BI040930

PATIENT
  Age: 45 Year
  Sex: Female

DRUGS (2)
  1. TYSABRI [Suspect]
     Indication: MULTIPLE SCLEROSIS
     Route: 042
     Dates: start: 20111019
  2. GABAPENTIN [Concomitant]
     Indication: PAIN IN EXTREMITY

REACTIONS (8)
  - BACK PAIN [None]
  - TREMOR [None]
  - PAIN IN EXTREMITY [None]
  - SINUSITIS [None]
  - SENSORY DISTURBANCE [None]
  - NECK PAIN [None]
  - MUSCULOSKELETAL PAIN [None]
  - MULTIPLE SCLEROSIS RELAPSE [None]
